FAERS Safety Report 6160919-0 (Version None)
Quarter: 2009Q2

REPORT INFORMATION
  Report Type: 
  Country: None (occurrence: None)
  Receive Date: 20090420
  Receipt Date: 20090420
  Transmission Date: 20091009
  Serious: Yes (Hospitalization)
  Sender: FDA-Public Use
  Company Number: PHHO2007SE19989

PATIENT
  Sex: Female

DRUGS (5)
  1. CIBADREX T29368+ [Suspect]
     Indication: HYPERTENSION
     Dosage: LEVEL 1
     Route: 048
     Dates: start: 20041124
  2. CIBADREX T29368+ [Suspect]
     Dosage: LEVEL 3
     Route: 048
  3. ATENOLOL [Suspect]
  4. LASIX [Suspect]
  5. ALFADIL [Suspect]

REACTIONS (3)
  - FALL [None]
  - ORTHOSTATIC HYPOTENSION [None]
  - VERTIGO [None]
